FAERS Safety Report 4959141-2 (Version None)
Quarter: 2006Q1

REPORT INFORMATION
  Report Type: 
  Country: None (occurrence: None)
  Receive Date: 20060127
  Receipt Date: 20050308
  Transmission Date: 20060701
  Serious: Yes (Hospitalization)
  Sender: FDA-Public Use
  Company Number: 05-03-0366

PATIENT
  Age: 55 Year
  Sex: Female

DRUGS (2)
  1. CLOZAPINE [Suspect]
     Indication: PERSONALITY DISORDER
     Dosage: 50-500MG QD, ORAL
     Route: 048
     Dates: start: 19991001, end: 20041201
  2. CLOZAPINE [Suspect]
     Indication: SCHIZOAFFECTIVE DISORDER
     Dosage: 50-500MG QD, ORAL
     Route: 048
     Dates: start: 19991001, end: 20041201

REACTIONS (2)
  - CATHETER PLACEMENT [None]
  - SURGERY [None]
